FAERS Safety Report 14412285 (Version 3)
Quarter: 2018Q1

REPORT INFORMATION
  Report Type: Spontaneous
  Country: GB (occurrence: GB)
  Receive Date: 20180119
  Receipt Date: 20180213
  Transmission Date: 20180509
  Serious: Yes (Other)
  Sender: FDA-Public Use
  Company Number: GB-JNJFOC-20180122789

PATIENT
  Age: 6 Decade
  Sex: Female

DRUGS (1)
  1. TRABECTEDIN [Suspect]
     Active Substance: TRABECTEDIN
     Indication: SARCOMA
     Route: 042

REACTIONS (1)
  - Pulmonary mass [Unknown]
